FAERS Safety Report 6953859-8 (Version None)
Quarter: 2010Q3

REPORT INFORMATION
  Report Type: 
  Country: None (occurrence: None)
  Receive Date: 20100829
  Receipt Date: 20100624
  Transmission Date: 20110219
  Serious: No
  Sender: FDA-Public Use
  Company Number: US-ABBOTT-10P-163-0654155-00

PATIENT
  Sex: Female

DRUGS (7)
  1. NIASPAN [Suspect]
     Indication: BLOOD CHOLESTEROL INCREASED
     Dates: start: 20100622
  2. INSULIN [Concomitant]
     Indication: TYPE 1 DIABETES MELLITUS
     Route: 058
  3. CARVEDILOL [Concomitant]
     Indication: HYPERTENSION
     Dosage: DAILY
  4. UNKNOWN BLOOD PRESSURE MEDICATION [Concomitant]
     Indication: HYPERTENSION
     Dosage: DAILY
  5. LASIX [Concomitant]
     Indication: HYPERTENSION
  6. COUMADIN [Concomitant]
     Indication: HEART VALVE REPLACEMENT
     Dosage: DAILY
     Dates: start: 19980101
  7. SIMVASTATIN [Concomitant]
     Indication: BLOOD CHOLESTEROL INCREASED
     Dosage: DAILY

REACTIONS (3)
  - FLUSHING [None]
  - HEADACHE [None]
  - HYPERHIDROSIS [None]
